FAERS Safety Report 24960926 (Version 3)
Quarter: 2025Q2

REPORT INFORMATION
  Report Type: Report from Study
  Country: US (occurrence: US)
  Receive Date: 20250212
  Receipt Date: 20250630
  Transmission Date: 20250717
  Serious: No
  Sender: AVERITAS
  Company Number: US-GRUNENTHAL-2025-102562

PATIENT
  Age: 68 Year
  Sex: Female

DRUGS (1)
  1. QUTENZA [Suspect]
     Active Substance: CAPSAICIN
     Indication: Diabetic neuropathy
     Route: 003

REACTIONS (4)
  - Burning sensation [Unknown]
  - Hypoaesthesia [Unknown]
  - Influenza [Unknown]
  - Feeling hot [Unknown]

NARRATIVE: CASE EVENT DATE: 20250101
